FAERS Safety Report 24425489 (Version 2)
Quarter: 2024Q4

REPORT INFORMATION
  Report Type: Report from Study
  Country: US (occurrence: US)
  Receive Date: 20241011
  Receipt Date: 20241026
  Transmission Date: 20250114
  Serious: Yes (Hospitalization, Other)
  Sender: ABBVIE
  Company Number: US-ABBVIE-5856027

PATIENT
  Sex: Female
  Weight: 105 kg

DRUGS (29)
  1. HUMIRA [Suspect]
     Active Substance: ADALIMUMAB
     Indication: Crohn^s disease
     Dosage: 40 MG
     Route: 058
     Dates: start: 20110101
  2. HUMIRA [Suspect]
     Active Substance: ADALIMUMAB
     Route: 058
  3. ECOTRIN [Concomitant]
     Active Substance: ASPIRIN
     Indication: Product used for unknown indication
     Route: 048
     Dates: start: 2024, end: 20240613
  4. LIPITOR [Concomitant]
     Active Substance: ATORVASTATIN CALCIUM
     Indication: Product used for unknown indication
     Route: 048
     Dates: start: 2024, end: 20240612
  5. COREG [Concomitant]
     Active Substance: CARVEDILOL
     Indication: Product used for unknown indication
     Route: 048
     Dates: start: 2024, end: 20240703
  6. TRELEGY ELLIPTA [Concomitant]
     Active Substance: FLUTICASONE FUROATE\UMECLIDINIUM BROMIDE\VILANTEROL TRIFENATATE
     Indication: Product used for unknown indication
     Dosage: 100-62.5-25MCG
  7. PREDNISONE [Concomitant]
     Active Substance: PREDNISONE
     Indication: Product used for unknown indication
     Dosage: TAKE 4 TABLETS FOR 3 DAYS, TAKE 3 TABLETS FOR 3 DAYS, TAKE 2 TABLETS FOR 3 DAYS, TAKE 1 TABLETS F...
     Dates: start: 20240629
  8. PREDNISONE [Concomitant]
     Active Substance: PREDNISONE
     Indication: Product used for unknown indication
     Dosage: TAKE 4 TABLETS FOR 3 DAYS, TAKE 3 TABLETS FOR 3 DAYS, TAKE 2 TABLETS FOR 3 DAYS, TAKE 1 TABLETS F...
     Dates: start: 20240530
  9. VITAMIN C [Concomitant]
     Active Substance: ASCORBIC ACID
     Indication: Product used for unknown indication
     Dosage: 2 TABLETS PER DAY
     Route: 048
     Dates: end: 20240613
  10. MITRAZOL [Concomitant]
     Indication: Product used for unknown indication
     Dosage: 2% POWDER
     Dates: end: 20240613
  11. HYGROTON [Concomitant]
     Active Substance: CHLORTHALIDONE
     Indication: Product used for unknown indication
     Route: 048
  12. PEPCID [Concomitant]
     Active Substance: FAMOTIDINE
     Indication: Product used for unknown indication
     Route: 048
     Dates: start: 2024, end: 20240613
  13. FLONASE [Concomitant]
     Active Substance: FLUTICASONE PROPIONATE
     Indication: Product used for unknown indication
     Dosage: 2 SPRAYS INTO BOTH NOSTRILS
     Dates: start: 2024, end: 20240613
  14. ROBITUSSIN (GUAIFENESIN) [Concomitant]
     Active Substance: GUAIFENESIN
     Indication: Product used for unknown indication
     Dosage: TIME INTERVAL: AS NECESSARY: EVERY FOUR HOURS, ?100MG/5 ML LIQUID
     Dates: end: 20240527
  15. K dur [Concomitant]
     Indication: Product used for unknown indication
     Route: 048
     Dates: end: 20240613
  16. POTASSIUM GLUCONATE [Concomitant]
     Active Substance: POTASSIUM GLUCONATE
     Indication: Product used for unknown indication
     Route: 048
  17. SYNTHROID [Concomitant]
     Active Substance: LEVOTHYROXINE SODIUM
     Indication: Product used for unknown indication
     Dates: start: 2024, end: 20240613
  18. SYNTHROID [Concomitant]
     Active Substance: LEVOTHYROXINE SODIUM
     Indication: Product used for unknown indication
     Dates: end: 20240703
  19. POTASSIUM CHLORIDE [Concomitant]
     Active Substance: POTASSIUM CHLORIDE
     Indication: Product used for unknown indication
     Route: 048
  20. MINERALS\VITAMINS [Concomitant]
     Active Substance: MINERALS\VITAMINS
     Indication: Product used for unknown indication
     Dosage: 1 TABLET?WOMEN FORMULA
     Route: 048
  21. ZITHROMAX [Concomitant]
     Active Substance: AZITHROMYCIN DIHYDRATE
     Indication: Product used for unknown indication
     Route: 048
     Dates: start: 20240629
  22. NORCO [Concomitant]
     Active Substance: ACETAMINOPHEN\HYDROCODONE BITARTRATE
     Indication: Product used for unknown indication
     Dosage: TIME INTERVAL: 0.16666667 DAYS: AS NEEDED FOR PAIN
     Route: 048
     Dates: start: 20240629
  23. VANTIN [Concomitant]
     Active Substance: CEFPODOXIME PROXETIL
     Indication: Product used for unknown indication
     Route: 048
     Dates: start: 20240630, end: 20240703
  24. TYLENOL [Concomitant]
     Active Substance: ACETAMINOPHEN
     Indication: Product used for unknown indication
     Dosage: AS NEEDED FOR FEVER TAKE 325MG TO 600MG
     Route: 048
     Dates: end: 20240528
  25. LIALDA [Concomitant]
     Active Substance: MESALAMINE
     Indication: Product used for unknown indication
     Dosage: TAKE 4 TABLET
     Route: 048
     Dates: end: 20240703
  26. IOHEXOL [Concomitant]
     Active Substance: IOHEXOL
     Indication: Product used for unknown indication
  27. MORPHINE [Concomitant]
     Active Substance: MORPHINE
     Indication: Product used for unknown indication
  28. SODIUM CHLORIDE [Concomitant]
     Active Substance: SODIUM CHLORIDE
     Indication: Product used for unknown indication
  29. SODIUM CHLORIDE [Concomitant]
     Active Substance: SODIUM CHLORIDE
     Indication: Product used for unknown indication
     Dosage: NS FLUSH, 0.9%

REACTIONS (37)
  - Acute respiratory failure [Unknown]
  - Pneumonia [Recovered/Resolved]
  - Chronic obstructive pulmonary disease [Not Recovered/Not Resolved]
  - Lower respiratory tract infection [Unknown]
  - COVID-19 [Recovered/Resolved]
  - Ear pain [Unknown]
  - Vomiting [Unknown]
  - Dyspnoea [Unknown]
  - Oedema peripheral [Unknown]
  - Deep vein thrombosis [Unknown]
  - Oxygen saturation decreased [Unknown]
  - Pneumonia [Recovered/Resolved]
  - Pneumonia [Recovered/Resolved]
  - Pneumonia [Recovered/Resolved]
  - Rectal haemorrhage [Unknown]
  - Skin warm [Unknown]
  - Crohn^s disease [Unknown]
  - Oropharyngeal pain [Unknown]
  - Infection [Unknown]
  - Gastroenteritis [Unknown]
  - Wheezing [Unknown]
  - Productive cough [Unknown]
  - Pyrexia [Unknown]
  - Chills [Unknown]
  - Chest pain [Unknown]
  - Dry skin [Unknown]
  - Atelectasis [Unknown]
  - Pleural fibrosis [Unknown]
  - Dyspnoea [Unknown]
  - Oral candidiasis [Unknown]
  - Gastroenteritis viral [Recovered/Resolved]
  - Nausea [Unknown]
  - Abdominal pain [Unknown]
  - Hypokalaemia [Unknown]
  - Renal fusion anomaly [Unknown]
  - Thrombosis [Unknown]
  - Haematochezia [Unknown]

NARRATIVE: CASE EVENT DATE: 20230101
